FAERS Safety Report 9898047 (Version 1)
Quarter: 2014Q1

REPORT INFORMATION
  Report Type: Spontaneous
  Country: GB (occurrence: GB)
  Receive Date: 20140214
  Receipt Date: 20140214
  Transmission Date: 20141002
  Serious: Yes (Other)
  Sender: FDA-Public Use
  Company Number: US-ASTRAZENECA-2014SE09554

PATIENT
  Age: 76 Year
  Sex: Female
  Weight: 60.3 kg

DRUGS (4)
  1. CANDESARTAN [Suspect]
     Indication: HYPERTENSION
     Route: 048
     Dates: end: 201303
  2. THYROXINE [Concomitant]
     Indication: HYPOTHYROIDISM
     Dosage: UNK
     Dates: start: 1991
  3. PARACETAMOL [Concomitant]
  4. IBUPROFEN [Concomitant]

REACTIONS (3)
  - Weight decreased [Recovered/Resolved]
  - Arthralgia [Recovered/Resolved]
  - Musculoskeletal disorder [Not Recovered/Not Resolved]
